FAERS Safety Report 24070853 (Version 1)
Quarter: 2024Q3

REPORT INFORMATION
  Report Type: Spontaneous
  Country: FR (occurrence: FR)
  Receive Date: 20240710
  Receipt Date: 20240710
  Transmission Date: 20241017
  Serious: No
  Sender: ROCHE
  Company Number: FR-ROCHE-3555157

PATIENT
  Age: 78 Year

DRUGS (1)
  1. VABYSMO [Suspect]
     Active Substance: FARICIMAB\FARICIMAB-SVOA
     Indication: Age-related macular degeneration
     Dosage: ON 23/APR/2024 RECEIVED FOURTH INJECTION OF FARICIMAB
     Route: 065

REACTIONS (1)
  - Visual impairment [Unknown]
